FAERS Safety Report 6216884-0 (Version None)
Quarter: 2009Q2

REPORT INFORMATION
  Report Type: 
  Country: None (occurrence: None)
  Receive Date: 20090605
  Receipt Date: 20090525
  Transmission Date: 20091009
  Serious: Yes (Hospitalization)
  Sender: FDA-Public Use
  Company Number: JP-AMGEN-US326421

PATIENT
  Sex: Female
  Weight: 57 kg

DRUGS (7)
  1. ENBREL [Suspect]
     Indication: RHEUMATOID ARTHRITIS
     Route: 058
     Dates: start: 20080501, end: 20081225
  2. RHEUMATREX [Suspect]
     Indication: RHEUMATOID ARTHRITIS
     Route: 048
     Dates: start: 20070122, end: 20070221
  3. RHEUMATREX [Suspect]
     Route: 048
     Dates: start: 20070222, end: 20070318
  4. RHEUMATREX [Suspect]
     Route: 048
     Dates: start: 20070319, end: 20071021
  5. RHEUMATREX [Suspect]
     Route: 048
     Dates: start: 20071022
  6. FOLIAMIN [Concomitant]
     Indication: PROPHYLAXIS
     Route: 048
     Dates: start: 20070122
  7. SALAZOSULFAPYRIDINE [Concomitant]
     Dates: start: 20060401

REACTIONS (2)
  - DRUG EFFECT DECREASED [None]
  - ORGANISING PNEUMONIA [None]
